FAERS Safety Report 10422349 (Version 2)
Quarter: 2014Q3

REPORT INFORMATION
  Report Type: Report from Study
  Country: US (occurrence: US)
  Receive Date: 20140901
  Receipt Date: 20140910
  Transmission Date: 20150326
  Serious: Yes (Other)
  Sender: FDA-Public Use
  Company Number: US-ACTELION-A-US2014-104357

PATIENT
  Age: 66 Year
  Sex: Female

DRUGS (1)
  1. TRACLEER [Suspect]
     Active Substance: BOSENTAN\BOSENTAN MONOHYDRATE
     Indication: SYSTEMIC SCLEROSIS
     Dosage: UNK
     Route: 048

REACTIONS (2)
  - Eye oedema [Unknown]
  - Eye laser surgery [Unknown]

NARRATIVE: CASE EVENT DATE: 20140820
